FAERS Safety Report 8383380-4 (Version None)
Quarter: 2012Q1

REPORT INFORMATION
  Report Type: 
  Country: None (occurrence: None)
  Receive Date: 20120323
  Receipt Date: 20110720
  Transmission Date: 20120608
  Serious: Yes (Other)
  Sender: FDA-Public Use
  Company Number: 163-21880-11051240

PATIENT
  Age: 76 Year
  Sex: Male

DRUGS (2)
  1. REVLIMID [Suspect]
     Indication: MULTIPLE MYELOMA
     Dosage: 25 MG, OD FOR 3 WEEKS AND 1 WEEK OFF, PO
     Route: 048
     Dates: start: 20110223, end: 20110502
  2. REVLIMID [Suspect]
     Indication: MONOCLONAL GAMMOPATHY
     Dosage: 25 MG, OD FOR 3 WEEKS AND 1 WEEK OFF, PO
     Route: 048
     Dates: start: 20110223, end: 20110502

REACTIONS (4)
  - PLATELET COUNT DECREASED [None]
  - WHITE BLOOD CELL COUNT DECREASED [None]
  - HAEMOGLOBIN DECREASED [None]
  - FULL BLOOD COUNT DECREASED [None]
